FAERS Safety Report 9505522 (Version 1)
Quarter: 2013Q1

REPORT INFORMATION
  Report Type: Spontaneous
  Country: US (occurrence: None)
  Receive Date: 20130220
  Receipt Date: 20130220
  Transmission Date: 20140127
  Serious: No
  Sender: FDA-Public Use
  Company Number: 1000040257

PATIENT
  Age: 24 Year
  Sex: Female

DRUGS (5)
  1. VIIBRYD [Suspect]
     Indication: MAJOR DEPRESSION
     Route: 048
     Dates: start: 20121002, end: 20121008
  2. VIIBRYD [Suspect]
     Indication: MAJOR DEPRESSION
     Route: 048
     Dates: start: 20121016, end: 201210
  3. VIIBRYD [Suspect]
     Indication: MAJOR DEPRESSION
     Route: 048
     Dates: start: 201211
  4. SYNTHROID (LEVOTHYROXINE SODIUM) [Suspect]
     Indication: HYPOTHYROIDISM
  5. PHENTERMINE (PHENTERMINE) (PHENTERMINE) [Concomitant]

REACTIONS (7)
  - Hallucination, auditory [None]
  - Hallucination, visual [None]
  - Anxiety [None]
  - Photopsia [None]
  - Paraesthesia [None]
  - Abnormal dreams [None]
  - Drug interaction [None]
